FAERS Safety Report 7445042-7 (Version None)
Quarter: 2011Q2

REPORT INFORMATION
  Report Type: 
  Country: None (occurrence: None)
  Receive Date: 20110429
  Receipt Date: 20110421
  Transmission Date: 20111010
  Serious: Yes (Death, Hospitalization)
  Sender: FDA-Public Use
  Company Number: SE-BAYER-2011-026097

PATIENT
  Age: 74 Year
  Sex: Male
  Weight: 65 kg

DRUGS (3)
  1. HYDROXYZINE [Concomitant]
     Indication: PRURITUS
     Dosage: 25 MG PRN
     Dates: start: 20110118
  2. SORAFENIB (RAF KINASE INHIBITOR) [Suspect]
     Indication: HEPATIC NEOPLASM MALIGNANT
     Dosage: 400 MG
     Route: 048
     Dates: start: 20110323, end: 20110324
  3. ALPRAZOLAM [Concomitant]
     Indication: ANXIETY
     Dosage: 0.5 MG PRN
     Route: 048
     Dates: start: 20110323

REACTIONS (2)
  - HAEMORRHAGE [None]
  - PAIN IN EXTREMITY [None]
